FAERS Safety Report 8989736 (Version 3)
Quarter: 2013Q1

REPORT INFORMATION
  Report Type: Spontaneous
  Country: US (occurrence: US)
  Receive Date: 20121228
  Receipt Date: 20130212
  Transmission Date: 20140127
  Serious: Yes (Other)
  Sender: FDA-Public Use
  Company Number: US-US-EMD SERONO, INC.-7183977

PATIENT
  Sex: Female

DRUGS (2)
  1. REBIF [Suspect]
     Indication: MULTIPLE SCLEROSIS
     Route: 058
     Dates: start: 2007
  2. REBIF [Suspect]
     Route: 058
     Dates: start: 20121121, end: 20121218

REACTIONS (3)
  - Incision site complication [Unknown]
  - Impaired healing [Unknown]
  - Autoimmune thyroiditis [Unknown]
